FAERS Safety Report 7751311-3 (Version None)
Quarter: 2011Q3

REPORT INFORMATION
  Report Type: 
  Country: None (occurrence: None)
  Receive Date: 20110914
  Receipt Date: 20110906
  Transmission Date: 20111222
  Serious: Yes (Hospitalization)
  Sender: FDA-Public Use
  Company Number: LT-AMGEN-LTUCT2011006194

PATIENT
  Age: 79 Year
  Sex: Male

DRUGS (1)
  1. DENOSUMAB [Suspect]
     Indication: METASTASES TO BONE
     Dosage: UNK UNK, Q4WK
     Route: 058
     Dates: start: 20100325

REACTIONS (1)
  - OSTEOMYELITIS [None]
